FAERS Safety Report 8228609-8 (Version None)
Quarter: 2012Q1

REPORT INFORMATION
  Report Type: 
  Country: None (occurrence: None)
  Receive Date: 20120322
  Receipt Date: 20110309
  Transmission Date: 20120608
  Serious: No
  Sender: FDA-Public Use
  Company Number: US-BRISTOL-MYERS SQUIBB COMPANY-15597370

PATIENT
  Age: 55 Year
  Sex: Female
  Weight: 52 kg

DRUGS (3)
  1. LEUCOVORIN CALCIUM [Concomitant]
  2. ERBITUX [Suspect]
     Dates: start: 20101101
  3. FLUOROURACIL [Concomitant]

REACTIONS (3)
  - RASH [None]
  - DIARRHOEA [None]
  - WEIGHT DECREASED [None]
